FAERS Safety Report 21166127 (Version 7)
Quarter: 2023Q1

REPORT INFORMATION
  Report Type: Report from Study
  Country: AU (occurrence: None)
  Receive Date: 20220803
  Receipt Date: 20230320
  Transmission Date: 20230418
  Serious: Yes (Other)
  Sender: FDA-Public Use
  Company Number: AU-ROCHE-3148449

PATIENT
  Age: 64 Year
  Sex: Female
  Weight: 70.5 kg

DRUGS (21)
  1. FARICIMAB [Suspect]
     Active Substance: FARICIMAB
     Indication: Macular oedema
     Dosage: ON 16/FEB/2022 12:49 PM, MOST RECENT DOSE OF MASKED FARICIMAB WAS ADMINISTERED PRIOR TO AE/SAE
     Route: 050
     Dates: start: 20211222
  2. FARICIMAB [Suspect]
     Active Substance: FARICIMAB
     Indication: Macular oedema
     Dosage: ON 16/FEB/2022 12:49 PM, MOST RECENT DOSE OF MASKED FARICIMAB WAS ADMINISTERED PRIOR TO AE/SAE
     Route: 050
     Dates: start: 20211222
  3. PRISTIQ EXTENDED-RELEASE [Concomitant]
     Active Substance: DESVENLAFAXINE SUCCINATE
     Indication: Depression
     Route: 048
     Dates: start: 2015
  4. NEXIUM [Concomitant]
     Active Substance: ESOMEPRAZOLE MAGNESIUM
     Indication: Uveitis
     Route: 048
     Dates: start: 20220413
  5. SIMBRINZA [Concomitant]
     Active Substance: BRIMONIDINE TARTRATE\BRINZOLAMIDE
     Indication: Uveitis
     Route: 047
     Dates: start: 20220706, end: 20220812
  6. SIMBRINZA [Concomitant]
     Active Substance: BRIMONIDINE TARTRATE\BRINZOLAMIDE
     Indication: Intraocular pressure increased
     Route: 047
     Dates: start: 20220601, end: 20220625
  7. SIMBRINZA [Concomitant]
     Active Substance: BRIMONIDINE TARTRATE\BRINZOLAMIDE
     Route: 047
     Dates: start: 20221221
  8. PHENYLEPHRINE HYDROCHLORIDE\PREDNISOLONE ACETATE [Concomitant]
     Active Substance: PHENYLEPHRINE HYDROCHLORIDE\PREDNISOLONE ACETATE
     Indication: Uveitis
     Route: 047
     Dates: start: 20220601, end: 20220629
  9. PHENYLEPHRINE HYDROCHLORIDE\PREDNISOLONE ACETATE [Concomitant]
     Active Substance: PHENYLEPHRINE HYDROCHLORIDE\PREDNISOLONE ACETATE
     Indication: Uveitis
     Route: 047
     Dates: start: 20220719
  10. PANADOL [Concomitant]
     Active Substance: ACETAMINOPHEN
     Indication: Vertigo
     Route: 048
     Dates: start: 20220506
  11. DEXAMETHASONE [Concomitant]
     Active Substance: DEXAMETHASONE
     Indication: Macular oedema
     Route: 050
     Dates: start: 20220608, end: 20220608
  12. ACETAMINOPHEN [Concomitant]
     Active Substance: ACETAMINOPHEN
     Indication: Pneumonia viral
     Route: 048
     Dates: start: 20220908, end: 20220909
  13. AMOXICILLIN\CLAVULANATE POTASSIUM [Concomitant]
     Active Substance: AMOXICILLIN\CLAVULANATE POTASSIUM
     Indication: Pneumonia viral
     Route: 048
     Dates: start: 20220908, end: 20220913
  14. OZURDEX [Concomitant]
     Active Substance: DEXAMETHASONE
     Indication: Macular oedema
     Route: 050
     Dates: start: 20230118, end: 20230118
  15. OZURDEX [Concomitant]
     Active Substance: DEXAMETHASONE
     Indication: Venous occlusion
  16. ATORVASTATIN [Concomitant]
     Active Substance: ATORVASTATIN
     Route: 048
     Dates: start: 20230206
  17. TELMISARTAN [Concomitant]
     Active Substance: TELMISARTAN
     Route: 048
     Dates: start: 20230206
  18. XALATAN [Concomitant]
     Active Substance: LATANOPROST
     Indication: Intraocular pressure increased
     Route: 047
     Dates: start: 20230215
  19. PERINDOPRIL ARGININE [Concomitant]
     Active Substance: PERINDOPRIL ARGININE
     Indication: Stress cardiomyopathy
     Route: 048
     Dates: start: 20230306
  20. ASPIRIN [Concomitant]
     Active Substance: ASPIRIN
     Indication: Stress cardiomyopathy
     Route: 048
     Dates: start: 20230306
  21. BISOPROLOL FUMARATE [Concomitant]
     Active Substance: BISOPROLOL FUMARATE
     Indication: Stress cardiomyopathy
     Route: 048
     Dates: start: 20230306

REACTIONS (1)
  - Epiretinal membrane [Not Recovered/Not Resolved]

NARRATIVE: CASE EVENT DATE: 20220706
